FAERS Safety Report 9828133 (Version 1)
Quarter: 2013Q4

REPORT INFORMATION
  Report Type: Spontaneous
  Country: US (occurrence: None)
  Receive Date: 20131223
  Receipt Date: 20131223
  Transmission Date: 20140711
  Serious: Yes (Other)
  Sender: FDA-Public Use
  Company Number: 220653LEO

PATIENT
  Age: 60 Year
  Sex: Female

DRUGS (1)
  1. PICATO [Suspect]
     Indication: ACTINIC KERATOSIS
     Route: 061
     Dates: start: 20130217, end: 20130219

REACTIONS (6)
  - Eye irritation [None]
  - Ocular hyperaemia [None]
  - Accidental exposure to product [None]
  - Application site erythema [None]
  - Application site pain [None]
  - Application site oedema [None]
